FAERS Safety Report 19349903 (Version 1)
Quarter: 2021Q2

REPORT INFORMATION
  Report Type: Spontaneous
  Country: US (occurrence: US)
  Receive Date: 20210601
  Receipt Date: 20210601
  Transmission Date: 20210717
  Serious: Yes (Other)
  Sender: FDA-Public Use
  Company Number: None

PATIENT
  Age: 44 Year
  Sex: Female
  Weight: 128.25 kg

DRUGS (1)
  1. FETZIMA [Suspect]
     Active Substance: LEVOMILNACIPRAN HYDROCHLORIDE
     Indication: MAJOR DEPRESSION
     Dates: start: 20210421, end: 20210523

REACTIONS (5)
  - Vomiting [None]
  - Nausea [None]
  - Dizziness [None]
  - Hyperhidrosis [None]
  - Cognitive disorder [None]

NARRATIVE: CASE EVENT DATE: 20210526
